FAERS Safety Report 5109976-0 (Version None)
Quarter: 2006Q3

REPORT INFORMATION
  Report Type: 
  Country: None (occurrence: None)
  Receive Date: 20060919
  Receipt Date: 20060919
  Transmission Date: 20061208
  Serious: Yes (Hospitalization)
  Sender: FDA-Public Use
  Company Number: None

PATIENT
  Age: 69 Year
  Sex: Female
  Weight: 63 kg

DRUGS (15)
  1. LOPRESSOR [Suspect]
     Indication: ATRIAL FIBRILLATION
     Dosage: 25 MG PO BID
     Route: 048
     Dates: start: 20060625
  2. SOTALOL HYDROCHLORIDE [Suspect]
     Indication: ATRIAL FIBRILLATION
     Dosage: 80 MG PO BID
     Route: 048
     Dates: start: 20060625
  3. ASPIRIN [Concomitant]
  4. FAMOTIDINE [Concomitant]
  5. FUROSEMIDE [Concomitant]
  6. INSULIN ASPART [Concomitant]
  7. MAGNESIUM [Concomitant]
  8. NEOSPORIN [Concomitant]
  9. PANTOPRAZOLE SODIUM [Concomitant]
  10. POTASSIUM CHLORIDE [Concomitant]
  11. SENOKOT [Concomitant]
  12. LACTULOSE [Concomitant]
  13. PREMARIN [Concomitant]
  14. SPIRONOLACTONE [Concomitant]
  15. TRIAMTERENE [Concomitant]

REACTIONS (5)
  - BLOOD PRESSURE DIASTOLIC DECREASED [None]
  - BRADYCARDIA [None]
  - DIZZINESS [None]
  - NODAL RHYTHM [None]
  - SICK SINUS SYNDROME [None]
